FAERS Safety Report 13801601 (Version 1)
Quarter: 2017Q3

REPORT INFORMATION
  Report Type: Spontaneous
  Country: US (occurrence: US)
  Receive Date: 20170727
  Receipt Date: 20170727
  Transmission Date: 20171127
  Serious: Yes (Other)
  Sender: FDA-Public Use
  Company Number: US-ALEXION-A201708097

PATIENT
  Age: 53 Year
  Sex: Male

DRUGS (1)
  1. SOLIRIS [Suspect]
     Active Substance: ECULIZUMAB
     Indication: PAROXYSMAL NOCTURNAL HAEMOGLOBINURIA
     Dosage: 450 MG, Q2W
     Route: 042
     Dates: start: 20131204, end: 20170712

REACTIONS (5)
  - Pituitary tumour [Not Recovered/Not Resolved]
  - Incorrect dose administered [Recovered/Resolved]
  - Respiratory arrest [Unknown]
  - Hormone level abnormal [Not Recovered/Not Resolved]
  - Sleep apnoea syndrome [Unknown]

NARRATIVE: CASE EVENT DATE: 20170626
